FAERS Safety Report 22074895 (Version 1)
Quarter: 2023Q1

REPORT INFORMATION
  Report Type: Spontaneous
  Country: US (occurrence: None)
  Receive Date: 20230308
  Receipt Date: 20230308
  Transmission Date: 20230418
  Serious: Yes (Hospitalization)
  Sender: FDA-Public Use
  Company Number: None

PATIENT

DRUGS (2)
  1. LABETALOL [Suspect]
     Active Substance: LABETALOL\LABETALOL HYDROCHLORIDE
  2. PHYTONADIONE [Suspect]
     Active Substance: PHYTONADIONE
     Dosage: OTHER STRENGTH : 1 MG PER 6.5 ML;?
     Route: 030

REACTIONS (3)
  - Product storage error [None]
  - Intercepted product dispensing error [None]
  - Product packaging confusion [None]
